FAERS Safety Report 15611523 (Version 1)
Quarter: 2018Q4

REPORT INFORMATION
  Report Type: Spontaneous
  Country: US (occurrence: US)
  Receive Date: 20181107
  Receipt Date: 20181107
  Transmission Date: 20190205
  Serious: No
  Sender: FDA-Public Use
  Company Number: None

PATIENT
  Age: 6 Year
  Sex: Male

DRUGS (1)
  1. ADVATE [Suspect]
     Active Substance: ANTIHEMOPHILIC FACTOR, HUMAN RECOMBINANT
     Indication: FACTOR VIII DEFICIENCY
     Dosage: ?          OTHER STRENGTH:2035 U/VL;OTHER DOSE:2290 UNITS;OTHER FREQUENCY:Q THURSDAY;?
     Route: 042
     Dates: start: 20141215

REACTIONS (1)
  - Product reconstitution quality issue [None]
